FAERS Safety Report 14191534 (Version 2)
Quarter: 2017Q4

REPORT INFORMATION
  Report Type: Report from Study
  Country: JP (occurrence: JP)
  Receive Date: 20171115
  Receipt Date: 20171215
  Transmission Date: 20180321
  Serious: Yes (Hospitalization)
  Sender: FDA-Public Use
  Company Number: JP-EISAI MEDICAL RESEARCH-EC-2017-033140

PATIENT
  Age: 33 Year
  Sex: Male
  Weight: 62 kg

DRUGS (15)
  1. FYCOMPA [Suspect]
     Active Substance: PERAMPANEL
     Route: 048
     Dates: start: 20170417, end: 20170424
  2. POSTERISAN [Concomitant]
     Active Substance: LIDOCAINE
  3. FYCOMPA [Suspect]
     Active Substance: PERAMPANEL
     Indication: PARTIAL SEIZURES
     Route: 048
     Dates: start: 20170130, end: 20170226
  4. FYCOMPA [Suspect]
     Active Substance: PERAMPANEL
     Route: 048
     Dates: start: 20170227, end: 20170312
  5. LOXONIN [Concomitant]
     Active Substance: LOXOPROFEN SODIUM
  6. HIRUDOID [Concomitant]
     Active Substance: GLYCOSAMINOGLYCANS
  7. LAMICTAL [Concomitant]
     Active Substance: LAMOTRIGINE
  8. E KEPPRA [Concomitant]
     Active Substance: LEVETIRACETAM
  9. PHENOBAL [Concomitant]
     Active Substance: PHENOBARBITAL
  10. ALEVIATIN [Concomitant]
     Active Substance: PHENYTOIN SODIUM
  11. MAGMITT [Concomitant]
     Active Substance: MAGNESIUM OXIDE
  12. MYSTAN [Concomitant]
     Active Substance: CLOBAZAM
  13. DELLEGRA [Concomitant]
     Active Substance: FEXOFENADINE HYDROCHLORIDE\PSEUDOEPHEDRINE HYDROCHLORIDE
  14. ALESION [Concomitant]
     Active Substance: EPINASTINE HYDROCHLORIDE
  15. FYCOMPA [Suspect]
     Active Substance: PERAMPANEL
     Route: 048
     Dates: start: 20170313, end: 20170416

REACTIONS (1)
  - Irritability [Recovered/Resolved]

NARRATIVE: CASE EVENT DATE: 20170414
